FAERS Safety Report 4623968-7 (Version None)
Quarter: 2005Q1

REPORT INFORMATION
  Report Type: 
  Country: None (occurrence: None)
  Receive Date: 20050331
  Receipt Date: 20050318
  Transmission Date: 20050727
  Serious: Yes (Other)
  Sender: FDA-Public Use
  Company Number: JP-ROCHE-399687

PATIENT
  Age: 29 Year
  Sex: Male

DRUGS (3)
  1. TAMIFLU [Suspect]
     Indication: INFLUENZA
     Route: 048
     Dates: start: 20050304, end: 20050308
  2. FLOMOX [Concomitant]
     Route: 048
     Dates: start: 20050302
  3. KAKKON-TO [Concomitant]
     Dosage: FORMULATION REPORTED AS ORAL FORMULATION (NOT OTHERWISE SPECIFIED).
     Route: 048
     Dates: start: 20050302

REACTIONS (2)
  - ANOREXIA [None]
  - WHITE BLOOD CELL COUNT DECREASED [None]
